FAERS Safety Report 25619527 (Version 2)
Quarter: 2025Q3

REPORT INFORMATION
  Report Type: Report from Study
  Country: US (occurrence: US)
  Receive Date: 20250729
  Receipt Date: 20250821
  Transmission Date: 20251021
  Serious: Yes (Other)
  Sender: ALEXION PHARMACEUTICALS
  Company Number: US-AstraZeneca-CH-00917973A

PATIENT
  Age: 39 Year
  Sex: Female

DRUGS (1)
  1. STRENSIQ [Suspect]
     Active Substance: ASFOTASE ALFA
     Indication: Hypophosphatasia

REACTIONS (13)
  - Delirium [Unknown]
  - Deafness [Unknown]
  - Haematochezia [Unknown]
  - Weight decreased [Unknown]
  - Heat stroke [Unknown]
  - Vomiting projectile [Unknown]
  - Headache [Unknown]
  - Arthralgia [Unknown]
  - Back pain [Unknown]
  - Depression [Unknown]
  - Pain [Unknown]
  - Tympanosclerosis [Unknown]
  - Injection site swelling [Not Recovered/Not Resolved]

NARRATIVE: CASE EVENT DATE: 20250501
